FAERS Safety Report 5139539-2 (Version None)
Quarter: 2006Q4

REPORT INFORMATION
  Report Type: 
  Country: None (occurrence: None)
  Receive Date: 20061024
  Receipt Date: 20061012
  Transmission Date: 20070319
  Serious: Yes (Other)
  Sender: FDA-Public Use
  Company Number: 2006121159

PATIENT
  Age: 59 Year
  Sex: Male

DRUGS (6)
  1. ATORVASTATIN CALCIUM [Suspect]
     Dosage: 20 MG (20 MG, 1 IN 1 D)
     Dates: start: 20060501
  2. ZESTORETIC [Concomitant]
  3. GLUCOPHAGE [Concomitant]
  4. ASPIRIN [Concomitant]
  5. INSULIN (INSULIN) [Concomitant]
  6. DRUG, UNSPECIFIED (DRUG, UNSPECIFIED) [Concomitant]

REACTIONS (2)
  - CONDITION AGGRAVATED [None]
  - TENDON PAIN [None]
